FAERS Safety Report 6416191-7 (Version None)
Quarter: 2009Q4

REPORT INFORMATION
  Report Type: 
  Country: None (occurrence: None)
  Receive Date: 20091027
  Receipt Date: 20091019
  Transmission Date: 20100525
  Serious: Yes (Other)
  Sender: FDA-Public Use
  Company Number: US-ELI_LILLY_AND_COMPANY-US200910005194

PATIENT
  Sex: Male

DRUGS (4)
  1. HUMULIN N [Suspect]
  2. HUMULIN N [Suspect]
  3. NOVOLIN N [Concomitant]
  4. ASPIRIN [Concomitant]
     Dosage: 81 MG, UNK

REACTIONS (3)
  - LOSS OF CONSCIOUSNESS [None]
  - METATARSAL EXCISION [None]
  - TOE AMPUTATION [None]
